FAERS Safety Report 13922445 (Version 12)
Quarter: 2020Q4

REPORT INFORMATION
  Report Type: Report from Study
  Country: AU (occurrence: AU)
  Receive Date: 20170830
  Receipt Date: 20201222
  Transmission Date: 20210113
  Serious: Yes (Death, Life-Threatening, Hospitalization, Other)
  Sender: FDA-Public Use
  Company Number: AU-EISAI MEDICAL RESEARCH-EC-2017-030647

PATIENT
  Age: 75 Year
  Sex: Male
  Weight: 77.9 kg

DRUGS (15)
  1. CRESTOR [Concomitant]
     Active Substance: ROSUVASTATIN CALCIUM
     Route: 048
     Dates: start: 1987
  2. VITAMIN B [Concomitant]
     Active Substance: VITAMIN B
  3. FUROSEMIDE. [Concomitant]
     Active Substance: FUROSEMIDE
  4. AMLODIPINE [Concomitant]
     Active Substance: AMLODIPINE BESYLATE
     Route: 048
     Dates: start: 1987
  5. DIAMICRON [Concomitant]
     Active Substance: GLICLAZIDE
     Route: 048
     Dates: start: 2012
  6. PHYSIOTENS [Concomitant]
     Active Substance: MOXONIDINE
     Route: 048
     Dates: start: 2012
  7. CALTRATE WITH VITAMIN D [Concomitant]
     Active Substance: CALCIUM CARBONATE\CHOLECALCIFEROL
     Route: 048
     Dates: start: 2017
  8. POTASSIUM [Concomitant]
     Active Substance: POTASSIUM
  9. LENVATINIB [Suspect]
     Active Substance: LENVATINIB
     Indication: CLEAR CELL RENAL CELL CARCINOMA
     Route: 048
     Dates: start: 20170802, end: 20170816
  10. PREDNISOLONE. [Concomitant]
     Active Substance: PREDNISOLONE
  11. METHYLPREDNISOLONE. [Concomitant]
     Active Substance: METHYLPREDNISOLONE
  12. TAMSULOSIN [Concomitant]
     Active Substance: TAMSULOSIN
     Route: 048
     Dates: start: 2012
  13. DIFFLAM MOUTHWAH [Concomitant]
  14. PEMBROLIZUMAB. [Suspect]
     Active Substance: PEMBROLIZUMAB
     Indication: CLEAR CELL RENAL CELL CARCINOMA
     Route: 041
     Dates: start: 20170802, end: 20170802
  15. ASPIRIN. [Concomitant]
     Active Substance: ASPIRIN
     Route: 048
     Dates: start: 2012

REACTIONS (4)
  - Autoimmune hepatitis [Fatal]
  - Pneumonitis [Fatal]
  - Nephritis [Fatal]
  - Myocarditis [Fatal]

NARRATIVE: CASE EVENT DATE: 20170824
